FAERS Safety Report 17349273 (Version 1)
Quarter: 2020Q1

REPORT INFORMATION
  Report Type: Spontaneous
  Country: US (occurrence: US)
  Receive Date: 20200115
  Receipt Date: 20200115
  Transmission Date: 20200409
  Serious: Yes (Hospitalization)
  Sender: FDA-Public Use
  Company Number: None

PATIENT
  Age: 80 Year
  Sex: Female

DRUGS (15)
  1. METFORMIN [Concomitant]
     Active Substance: METFORMIN HYDROCHLORIDE
  2. ADCIRCA [Suspect]
     Active Substance: TADALAFIL
     Dosage: ?          OTHER DOSE:2 TAB;?
  3. GABAPENTIN. [Concomitant]
     Active Substance: GABAPENTIN
  4. LEVOTHYROXIN [Concomitant]
     Active Substance: LEVOTHYROXINE
  5. ROSUVASTATIN. [Concomitant]
     Active Substance: ROSUVASTATIN
  6. SPIRONOLACT [Concomitant]
     Active Substance: SPIRONOLACTONE
  7. XARELTO [Concomitant]
     Active Substance: RIVAROXABAN
  8. SYNTHROID [Concomitant]
     Active Substance: LEVOTHYROXINE SODIUM
  9. FUROSEMIDE. [Concomitant]
     Active Substance: FUROSEMIDE
  10. OPSUMIT [Concomitant]
     Active Substance: MACITENTAN
  11. DIGOX [Concomitant]
     Active Substance: DIGOXIN
  12. VITAMIN D [Concomitant]
     Active Substance: VITAMIN D NOS
  13. DIGOXIN. [Concomitant]
     Active Substance: DIGOXIN
  14. DILTIAZEM. [Concomitant]
     Active Substance: DILTIAZEM
  15. FEROSUL [Concomitant]
     Active Substance: FERROUS SULFATE

REACTIONS (1)
  - Heart rate increased [None]

NARRATIVE: CASE EVENT DATE: 20200102
